FAERS Safety Report 6753161-3 (Version None)
Quarter: 2010Q2

REPORT INFORMATION
  Report Type: 
  Country: None (occurrence: None)
  Receive Date: 20100526
  Receipt Date: 20100417
  Transmission Date: 20101027
  Serious: No
  Sender: FDA-Public Use
  Company Number: 307370

PATIENT
  Age: 46 Year
  Sex: Female

DRUGS (3)
  1. VICTOZA [Suspect]
     Indication: DRUG USE FOR UNKNOWN INDICATION
     Dosage: 0.6 LU, QD, SUBCUTANEOUS
     Route: 058
  2. AVALIDE [Concomitant]
  3. PLAVIX [Concomitant]

REACTIONS (1)
  - RASH GENERALISED [None]
